FAERS Safety Report 4308539-4 (Version None)
Quarter: 2004Q1

REPORT INFORMATION
  Report Type: 
  Country: None (occurrence: None)
  Receive Date: 20040226
  Receipt Date: 20030912
  Transmission Date: 20041129
  Serious: Yes (Hospitalization)
  Sender: FDA-Public Use
  Company Number: 2003173790US

PATIENT
  Age: 73 Year
  Sex: Female
  Weight: 83.4 kg

DRUGS (12)
  1. CELEBREX [Suspect]
     Indication: ARTHRITIS
     Dates: start: 20010401, end: 20010401
  2. LEVOXYL [Concomitant]
  3. UNIPHYL [Concomitant]
  4. CORTIAZEM - SLOW RELEASE [Concomitant]
  5. ACCOLATE [Concomitant]
  6. ACTOS [Concomitant]
  7. ACCUPRIL [Concomitant]
  8. PREDNISONE [Concomitant]
  9. ADVAIR DISKUS 100/50 [Concomitant]
  10. ALBUTEROL [Concomitant]
  11. ATROVENT [Concomitant]
  12. OXYGEN (OXYGEN) [Concomitant]

REACTIONS (1)
  - HYPERSENSITIVITY [None]
